FAERS Safety Report 8983104 (Version 2)
Quarter: 2015Q4

REPORT INFORMATION
  Report Type: Report from Study
  Country: JP (occurrence: JP)
  Receive Date: 20121224
  Receipt Date: 20151223
  Transmission Date: 20160305
  Serious: Yes (Death)
  Sender: FDA-Public Use
  Company Number: JP-009507513-2011SP053317

PATIENT
  Age: 51 Year
  Sex: Male
  Weight: 74 kg

DRUGS (10)
  1. TEMOZOLOMIDE. [Suspect]
     Active Substance: TEMOZOLOMIDE
     Dosage: 200 MG/M2, QD
     Route: 048
     Dates: start: 20070329, end: 20070402
  2. TEMOZOLOMIDE. [Suspect]
     Active Substance: TEMOZOLOMIDE
     Dosage: 200 MG/M2, QD
     Route: 048
     Dates: start: 20070426, end: 20070430
  3. BAKTAR [Concomitant]
     Active Substance: SULFAMETHOXAZOLE\TRIMETHOPRIM
     Indication: ANTIFUNGAL PROPHYLAXIS
     Dosage: DAILY DOSE UNKNOWN
     Route: 048
     Dates: start: 20061122, end: 20070209
  4. GASTER [Concomitant]
     Active Substance: FAMOTIDINE
     Indication: PROPHYLAXIS
     Dosage: DAILY DOSE UNKNOWN
     Route: 048
     Dates: end: 20070810
  5. TEMOZOLOMIDE. [Suspect]
     Active Substance: TEMOZOLOMIDE
     Indication: ANAPLASTIC ASTROCYTOMA
     Dosage: 75 MG/M2, QD
     Route: 048
     Dates: start: 20061122, end: 20070102
  6. BAKTAR [Concomitant]
     Active Substance: SULFAMETHOXAZOLE\TRIMETHOPRIM
     Dosage: DAILY DOSE UNKNOWN
     Route: 048
     Dates: start: 20070210
  7. LEXIN (CARBAMAZEPINE) [Concomitant]
     Active Substance: CARBAMAZEPINE
     Indication: PROPHYLAXIS
     Dosage: DAILY DOSE UNKNOWN, FORMULATION: POR
     Route: 048
     Dates: end: 20070629
  8. TEMOZOLOMIDE. [Suspect]
     Active Substance: TEMOZOLOMIDE
     Dosage: 150 MG/M2, QD
     Route: 048
     Dates: start: 20070130, end: 20070203
  9. TEMOZOLOMIDE. [Suspect]
     Active Substance: TEMOZOLOMIDE
     Dosage: 200 MG/M2, QD
     Route: 048
     Dates: start: 20070228, end: 20070304
  10. TEMOZOLOMIDE. [Suspect]
     Active Substance: TEMOZOLOMIDE
     Dosage: 200 MG/M2, QD
     Route: 048
     Dates: start: 20070524, end: 20070528

REACTIONS (4)
  - White blood cell count increased [Recovered/Resolved]
  - Disease progression [Fatal]
  - Lymphocyte count decreased [Not Recovered/Not Resolved]
  - Gamma-glutamyltransferase increased [Not Recovered/Not Resolved]

NARRATIVE: CASE EVENT DATE: 20061204
